FAERS Safety Report 8322948-8 (Version None)
Quarter: 2012Q2

REPORT INFORMATION
  Report Type: 
  Country: None (occurrence: None)
  Receive Date: 20120426
  Receipt Date: 20120416
  Transmission Date: 20120825
  Serious: Yes (Hospitalization)
  Sender: FDA-Public Use
  Company Number: 2012AL000039

PATIENT
  Age: 65 Year
  Sex: Male
  Weight: 57.4 kg

DRUGS (1)
  1. PRALATREXATE (PRALATREXATE) [Suspect]
     Indication: PERIPHERAL T-CELL LYMPHOMA UNSPECIFIED
     Dosage: 25 MG, QW, IV
     Route: 042
     Dates: start: 20110808, end: 20120409

REACTIONS (7)
  - CONFUSIONAL STATE [None]
  - HYPONATRAEMIA [None]
  - CHEST PAIN [None]
  - HAEMORRHAGE INTRACRANIAL [None]
  - SUBDURAL HAEMATOMA [None]
  - INAPPROPRIATE ANTIDIURETIC HORMONE SECRETION [None]
  - AGITATION [None]
